FAERS Safety Report 5189410-5 (Version None)
Quarter: 2006Q4

REPORT INFORMATION
  Report Type: 
  Country: None (occurrence: None)
  Receive Date: 20061221
  Receipt Date: 20061211
  Transmission Date: 20070319
  Serious: Yes (Life-Threatening)
  Sender: FDA-Public Use
  Company Number: NZ-MERCK-0612NZL00029

PATIENT
  Age: 60 Year
  Sex: Male

DRUGS (5)
  1. FOSAMAX [Suspect]
     Indication: OSTEOPOROSIS
     Route: 048
     Dates: start: 20051201, end: 20060125
  2. ZOCOR [Interacting]
     Indication: HEART TRANSPLANT
     Route: 048
     Dates: start: 20050807, end: 20060125
  3. CYCLOSPORINE [Interacting]
     Indication: HEART TRANSPLANT
     Route: 048
     Dates: start: 20050804
  4. DILTIAZEM HYDROCHLORIDE [Interacting]
     Indication: HEART TRANSPLANT
     Route: 048
     Dates: start: 20050815
  5. SULFAMETHOXAZOLE AND TRIMETHOPRIM [Concomitant]
     Route: 048
     Dates: start: 20050815

REACTIONS (4)
  - BLOOD CREATINE PHOSPHOKINASE INCREASED [None]
  - DRUG INTERACTION [None]
  - RENAL FAILURE ACUTE [None]
  - RHABDOMYOLYSIS [None]
